FAERS Safety Report 9567671 (Version 2)
Quarter: 2013Q3

REPORT INFORMATION
  Report Type: Spontaneous
  Country: US (occurrence: US)
  Receive Date: 20130930
  Receipt Date: 20130930
  Transmission Date: 20140515
  Serious: No
  Sender: FDA-Public Use
  Company Number: US-AMGEN-USASP2013015820

PATIENT
  Age: 40 Year
  Sex: Female
  Weight: 102.4 kg

DRUGS (9)
  1. ENBREL [Suspect]
     Indication: ANKYLOSING SPONDYLITIS
     Dosage: 25 MG, EVERY THREE DAYS.
     Route: 058
  2. BUTRANS                            /00444001/ [Concomitant]
     Dosage: 10 MUG/HR
  3. METHOTREXATE [Concomitant]
     Dosage: 2.5 MG, UNK
  4. FOLIC ACID [Concomitant]
     Dosage: UNK
  5. LEUCOVORIN CA [Concomitant]
     Dosage: 10 MG, UNK
  6. DOXYCYCLINE [Concomitant]
     Dosage: 150 MG, UNK
  7. LYRICA [Concomitant]
     Dosage: 25 MG, UNK
  8. CYMBALTA [Concomitant]
     Dosage: 20 MG, UNK
  9. TOPAMAX [Concomitant]
     Dosage: 25 MG, UNK

REACTIONS (8)
  - Drug ineffective [Unknown]
  - Injection site pain [Unknown]
  - Arthralgia [Unknown]
  - Joint swelling [Unknown]
  - Erythema [Unknown]
  - Ankylosing spondylitis [Unknown]
  - Nodule [Unknown]
  - Paraesthesia [Unknown]
